FAERS Safety Report 7077302-6 (Version None)
Quarter: 2010Q4

REPORT INFORMATION
  Report Type: 
  Country: None (occurrence: None)
  Receive Date: 20101029
  Receipt Date: 20101029
  Transmission Date: 20110411
  Serious: No
  Sender: FDA-Public Use
  Company Number: None

PATIENT
  Age: 59 Year
  Sex: Female
  Weight: 47.6277 kg

DRUGS (1)
  1. OXCONTIN OXYCONTIN 60 MIL. DAILY [Suspect]
     Indication: MUSCULOSKELETAL PAIN
     Dates: start: 20101028

REACTIONS (2)
  - DRUG INEFFECTIVE [None]
  - PRODUCT FORMULATION ISSUE [None]
